FAERS Safety Report 23825102 (Version 7)
Quarter: 2024Q4

REPORT INFORMATION
  Report Type: Spontaneous
  Country: DE (occurrence: DE)
  Receive Date: 20240507
  Receipt Date: 20241003
  Transmission Date: 20250115
  Serious: Yes (Life-Threatening, Hospitalization, Other)
  Sender: UCB
  Company Number: None

PATIENT
  Age: 72 Year
  Sex: Female

DRUGS (25)
  1. LACOSAMIDE [Interacting]
     Active Substance: LACOSAMIDE
     Indication: Partial seizures
     Dosage: 100 MILLIGRAM PER DAY / 50MG (1-0-1)
     Dates: start: 20230713
  2. LACOSAMIDE [Interacting]
     Active Substance: LACOSAMIDE
     Indication: Epilepsy
     Dosage: 200 MILLIGRAM PER DAY / RAISED TO 100MG (1-0-1) ON 17.07.2023.
     Dates: start: 20230717, end: 20230731
  3. LACOSAMIDE [Interacting]
     Active Substance: LACOSAMIDE
     Indication: Epilepsy
     Dosage: 50 MILLIGRAM, 2X/DAY (BID), 50 MG P.O. 1-0-1
     Route: 048
     Dates: start: 20230713, end: 20230731
  4. LACOSAMIDE [Interacting]
     Active Substance: LACOSAMIDE
     Dosage: UNK
  5. LACOSAMIDE [Interacting]
     Active Substance: LACOSAMIDE
     Dosage: UNK
  6. FLECAINIDE [Interacting]
     Active Substance: FLECAINIDE
     Indication: Atrial fibrillation
     Dosage: UNK
  7. FLECAINIDE [Interacting]
     Active Substance: FLECAINIDE
     Indication: Atrial flutter
     Dosage: 100MG (1-0-1) / 200MG PER DAY
  8. FLECAINIDE [Interacting]
     Active Substance: FLECAINIDE
     Indication: Product used for unknown indication
     Dosage: 100 MILLIGRAM, ONCE DAILY (QD), 100MG 1-0-0 P.O. FROM BEFORE ADMISSION
     Route: 048
  9. FLECAINIDE [Interacting]
     Active Substance: FLECAINIDE
     Dosage: UNK
  10. FLECAINIDE [Interacting]
     Active Substance: FLECAINIDE
     Dosage: 100 MILLIGRAM
  11. TOLVAPTAN [Concomitant]
     Active Substance: TOLVAPTAN
     Indication: Inappropriate antidiuretic hormone secretion
     Dosage: 15MG (1-0-0)
  12. TOLVAPTAN [Concomitant]
     Active Substance: TOLVAPTAN
     Indication: Inappropriate antidiuretic hormone secretion
     Dosage: UNK
     Dates: start: 2020
  13. TOLVAPTAN [Concomitant]
     Active Substance: TOLVAPTAN
     Indication: Inappropriate antidiuretic hormone secretion
     Dosage: UNK
  14. TOLVAPTAN [Concomitant]
     Active Substance: TOLVAPTAN
     Indication: Inappropriate antidiuretic hormone secretion
     Dosage: 15 MILLIGRAM
     Dates: start: 2020
  15. APIXABAN [Concomitant]
     Active Substance: APIXABAN
     Indication: Atrial flutter
     Dosage: UNK
  16. APIXABAN [Concomitant]
     Active Substance: APIXABAN
     Indication: Product used for unknown indication
     Dosage: 5 MILLIGRAM
  17. LEVOTHYROXINE [Concomitant]
     Active Substance: LEVOTHYROXINE
     Indication: Inappropriate antidiuretic hormone secretion
     Dosage: 40 MILLIGRAM
  18. LEVOTHYROXINE [Concomitant]
     Active Substance: LEVOTHYROXINE
     Indication: Product used for unknown indication
     Dosage: 100 MICROGRAM
  19. CANDESARTAN [Concomitant]
     Active Substance: CANDESARTAN
     Indication: Hypertension
     Dosage: 10 MILLIGRAM
  20. CANDESARTAN [Concomitant]
     Active Substance: CANDESARTAN
     Indication: Product used for unknown indication
     Dosage: 16 MILLIGRAM
  21. NEBIVOLOL [Concomitant]
     Active Substance: NEBIVOLOL
     Indication: Atrial flutter
     Dosage: UNK
  22. NEBIVOLOL [Concomitant]
     Active Substance: NEBIVOLOL
     Indication: Product used for unknown indication
  23. PANTOPRAZOLE [Concomitant]
     Active Substance: PANTOPRAZOLE
     Indication: Inappropriate antidiuretic hormone secretion
     Dosage: 10 MILLIGRAM
  24. PANTOPRAZOLE [Concomitant]
     Active Substance: PANTOPRAZOLE
     Indication: Product used for unknown indication
     Dosage: 40 MILLIGRAM
  25. LERCANIDIPINE [Concomitant]
     Active Substance: LERCANIDIPINE
     Indication: Product used for unknown indication
     Dosage: 10 MILLIGRAM

REACTIONS (19)
  - Electrocardiogram QRS complex prolonged [Recovered/Resolved]
  - Atrioventricular block [Recovered/Resolved]
  - Potentiating drug interaction [Unknown]
  - Drug interaction [Recovered/Resolved]
  - Syncope [Recovered/Resolved]
  - Confusional state [Recovered/Resolved]
  - Bundle branch block right [Recovered/Resolved]
  - Acute kidney injury [Recovered/Resolved]
  - Defect conduction intraventricular [Recovered/Resolved]
  - Rhythm idioventricular [Recovered/Resolved]
  - Hyponatraemia [Recovered/Resolved]
  - Electrocardiogram PR prolongation [Recovered/Resolved]
  - Toxicity to various agents [Recovered/Resolved]
  - Drug ineffective [Unknown]
  - Pulseless electrical activity [Unknown]
  - Renal impairment [Unknown]
  - Atrial fibrillation [Recovered/Resolved]
  - Sinus node dysfunction [Unknown]
  - Bradycardia [Recovered/Resolved]

NARRATIVE: CASE EVENT DATE: 20230731
